FAERS Safety Report 7067554-0 (Version None)
Quarter: 2010Q4

REPORT INFORMATION
  Report Type: 
  Country: None (occurrence: None)
  Receive Date: 20101028
  Receipt Date: 20101019
  Transmission Date: 20110411
  Serious: Yes (Other)
  Sender: FDA-Public Use
  Company Number: DE-ASTRAZENECA-2010SE48123

PATIENT
  Age: 60 Year
  Sex: Female
  Weight: 65 kg

DRUGS (2)
  1. SEROQUEL XR [Suspect]
     Indication: DELUSION
     Dosage: 300-400 MG DAILY
     Route: 048
     Dates: start: 20080101
  2. TREVILOR RETARD [Concomitant]
     Indication: DEPRESSION
     Route: 048
     Dates: start: 20030101

REACTIONS (1)
  - OSTEONECROSIS [None]
